FAERS Safety Report 4476132-9 (Version None)
Quarter: 2004Q3

REPORT INFORMATION
  Report Type: 
  Country: None (occurrence: None)
  Receive Date: 20040923
  Receipt Date: 20040622
  Transmission Date: 20050211
  Serious: No
  Sender: FDA-Public Use
  Company Number: USA040670682

PATIENT
  Sex: Female
  Weight: 49 kg

DRUGS (2)
  1. FORTEO [Suspect]
     Indication: OSTEOPOROSIS
     Dosage: 20 UG/1 DAY
  2. CITRACAL WITH VITAMIN D [Concomitant]

REACTIONS (3)
  - INJECTION SITE HAEMORRHAGE [None]
  - PRURITUS [None]
  - RASH [None]
